FAERS Safety Report 4535767-5 (Version None)
Quarter: 2004Q4

REPORT INFORMATION
  Report Type: 
  Country: None (occurrence: None)
  Receive Date: 20041223
  Receipt Date: 20040227
  Transmission Date: 20050328
  Serious: No
  Sender: FDA-Public Use
  Company Number: US-GLAXOSMITHKLINE-A0500354A

PATIENT
  Age: 68 Year
  Sex: Female

DRUGS (2)
  1. FLONASE [Suspect]
     Route: 045
     Dates: start: 20040101
  2. BACTRIM [Concomitant]
     Route: 065

REACTIONS (1)
  - EPISTAXIS [None]
